FAERS Safety Report 8114634-4 (Version None)
Quarter: 2012Q1

REPORT INFORMATION
  Report Type: 
  Country: None (occurrence: None)
  Receive Date: 20120206
  Receipt Date: 20120201
  Transmission Date: 20120608
  Serious: Yes (Other)
  Sender: FDA-Public Use
  Company Number: US-PFIZER INC-2012028224

PATIENT
  Sex: Female
  Weight: 81.633 kg

DRUGS (3)
  1. LYRICA [Suspect]
     Indication: FIBROMYALGIA
     Dosage: 75 MG, 2X/DAY
     Route: 048
     Dates: start: 20110101
  2. CELEXA [Concomitant]
     Indication: DEPRESSION
     Dosage: UNK
  3. XANAX [Concomitant]
     Indication: ANXIETY
     Dosage: UNK

REACTIONS (1)
  - FOOT FRACTURE [None]
